FAERS Safety Report 16697573 (Version 1)
Quarter: 2019Q3

REPORT INFORMATION
  Report Type: Spontaneous
  Country: FR (occurrence: FR)
  Receive Date: 20190813
  Receipt Date: 20190813
  Transmission Date: 20191004
  Serious: Yes (Life-Threatening)
  Sender: FDA-Public Use
  Company Number: PHHY2019FR186902

PATIENT
  Age: 48 Year
  Sex: Female

DRUGS (3)
  1. TERCIAN [Suspect]
     Active Substance: CYAMEMAZINE
     Indication: TOXICITY TO VARIOUS AGENTS
     Dosage: 3 DF, UNK
     Route: 048
  2. IMOVANE [Suspect]
     Active Substance: ZOPICLONE
     Indication: TOXICITY TO VARIOUS AGENTS
     Dosage: 1 DF, UNK
     Route: 048
  3. QUETIAPINE. [Suspect]
     Active Substance: QUETIAPINE
     Indication: TOXICITY TO VARIOUS AGENTS
     Dosage: 24 DF, UNK
     Route: 048

REACTIONS (3)
  - Toxicity to various agents [Recovered/Resolved]
  - Coma [Recovered/Resolved]
  - Bladder dilatation [Recovered/Resolved]

NARRATIVE: CASE EVENT DATE: 20190721
